FAERS Safety Report 8153588-1 (Version None)
Quarter: 2012Q1

REPORT INFORMATION
  Report Type: 
  Country: None (occurrence: None)
  Receive Date: 20120221
  Receipt Date: 20120209
  Transmission Date: 20120608
  Serious: Yes (Hospitalization)
  Sender: FDA-Public Use
  Company Number: FR-BAYER-2011-096557

PATIENT
  Age: 46 Year
  Sex: Male

DRUGS (7)
  1. IBUPROFEN TABLETS [Suspect]
     Indication: MUSCULOSKELETAL PAIN
     Dosage: 100 MG, BID
     Route: 048
     Dates: start: 20110825, end: 20110830
  2. ATARAX [Suspect]
     Indication: ANXIETY
     Dosage: 25 MG, ONCE
     Route: 048
     Dates: start: 20110830, end: 20110830
  3. IOPAMIDOL [Suspect]
     Indication: MUSCULOSKELETAL PAIN
  4. OMEPRAZOLE [Suspect]
     Indication: GASTRITIS PROPHYLAXIS
     Dosage: 20 MG, QD
     Route: 048
     Dates: start: 20110825, end: 20110830
  5. TRIAMCINOLONE HEXACETONIDE SUSPENSION/INJ [Suspect]
     Indication: MUSCULOSKELETAL PAIN
     Dosage: 1 DF, ONCE
     Route: 014
     Dates: start: 20110831, end: 20110831
  6. IOPAMIDOL [Suspect]
     Indication: PRODUCT USED FOR UNKNOWN INDICATION
     Dosage: 300 MG, ONCE
     Route: 014
     Dates: start: 20110831, end: 20110831
  7. XYLOCAINE [Suspect]
     Indication: MUSCULOSKELETAL PAIN
     Dosage: 1 DF, ONCE
     Route: 014
     Dates: start: 20110831, end: 20110831

REACTIONS (2)
  - TOXIC SKIN ERUPTION [None]
  - EOSINOPHIL COUNT INCREASED [None]
